FAERS Safety Report 25202940 (Version 1)
Quarter: 2025Q2

REPORT INFORMATION
  Report Type: Spontaneous
  Country: KR (occurrence: KR)
  Receive Date: 20250416
  Receipt Date: 20250416
  Transmission Date: 20250716
  Serious: Yes (Other)
  Sender: UCB
  Company Number: KR-UCBSA-2025020451

PATIENT
  Sex: Female
  Weight: 43 kg

DRUGS (1)
  1. KEPPRA [Suspect]
     Active Substance: LEVETIRACETAM
     Indication: Contusion
     Dosage: 500 MILLIGRAM, ONCE DAILY (QD)
     Dates: start: 20231227, end: 20231227

REACTIONS (1)
  - Delirium [Recovered/Resolved]

NARRATIVE: CASE EVENT DATE: 20231227
